FAERS Safety Report 4830173-8 (Version None)
Quarter: 2005Q4

REPORT INFORMATION
  Report Type: 
  Country: None (occurrence: None)
  Receive Date: 20051117
  Receipt Date: 20050810
  Transmission Date: 20060501
  Serious: Yes (Other)
  Sender: FDA-Public Use
  Company Number: US-MERCK-0508USA02084

PATIENT
  Age: 35 Year
  Sex: Female
  Weight: 86 kg

DRUGS (9)
  1. VIOXX [Suspect]
     Indication: BACK PAIN
     Route: 048
     Dates: start: 20030501, end: 20030801
  2. VIOXX [Suspect]
     Route: 048
     Dates: start: 20030501, end: 20030801
  3. VIOXX [Suspect]
     Indication: ARTHRALGIA
     Route: 048
     Dates: start: 20030501, end: 20030801
  4. VIOXX [Suspect]
     Route: 048
     Dates: start: 20030501, end: 20030801
  5. ASPIRIN [Concomitant]
     Route: 065
     Dates: start: 19980101
  6. NEURONTIN [Concomitant]
     Indication: BACK PAIN
     Route: 065
  7. NEURONTIN [Concomitant]
     Indication: ARTHRALGIA
     Route: 065
  8. ZOLOFT [Concomitant]
     Indication: DEPRESSION
     Route: 065
     Dates: start: 20030101
  9. TOPROL-XL [Concomitant]
     Indication: HEART RATE IRREGULAR
     Route: 065
     Dates: start: 19980101

REACTIONS (2)
  - MYOCARDIAL INFARCTION [None]
  - PRESCRIBED OVERDOSE [None]
